FAERS Safety Report 10598997 (Version 1)
Quarter: 2014Q4

REPORT INFORMATION
  Report Type: Other
  Country: IT (occurrence: IT)
  Receive Date: 20141121
  Receipt Date: 20141121
  Transmission Date: 20150529
  Serious: Yes (Other)
  Sender: FDA-Public Use
  Company Number: IT-MYLANLABS-2014M1010727

PATIENT
  Age: 76 Year
  Sex: Female

DRUGS (2)
  1. ENALAPRIL MALEATE. [Suspect]
     Active Substance: ENALAPRIL MALEATE
     Indication: HYPERTENSION
     Dosage: 1 DF DAILY
     Route: 048
     Dates: start: 20141015, end: 20141105
  2. ARCOXIA [Interacting]
     Active Substance: ETORICOXIB
     Indication: ARTHRALGIA
     Dosage: 1 DF DAILY
     Route: 048
     Dates: start: 20141101, end: 20141105

REACTIONS (3)
  - Hypertension [Recovering/Resolving]
  - Drug interaction [Recovering/Resolving]
  - Gravitational oedema [Recovering/Resolving]

NARRATIVE: CASE EVENT DATE: 20141105
